FAERS Safety Report 16741226 (Version 2)
Quarter: 2019Q3

REPORT INFORMATION
  Report Type: Spontaneous
  Country: US (occurrence: US)
  Receive Date: 20190826
  Receipt Date: 20190906
  Transmission Date: 20191005
  Serious: Yes (Other)
  Sender: FDA-Public Use
  Company Number: US-ASTRAZENECA-2019SF09690

PATIENT
  Age: 22885 Day
  Sex: Female
  Weight: 96.2 kg

DRUGS (12)
  1. ZITHROMAX [Concomitant]
     Active Substance: AZITHROMYCIN DIHYDRATE
     Dosage: 1 DF EVERY MONDAY, WEDNESDAY, AND FRIDAY.
     Route: 048
  2. FASENRA [Suspect]
     Active Substance: BENRALIZUMAB
     Route: 058
  3. PRILOSEC [Suspect]
     Active Substance: OMEPRAZOLE MAGNESIUM
     Route: 048
  4. PROVENTIL [Concomitant]
     Active Substance: ALBUTEROL
     Indication: WHEEZING
     Dosage: 1 VIAL BY NEBULIZER EVERY 4 HOURS AS NEEDED
     Route: 055
  5. ADVAIR HFA [Concomitant]
     Active Substance: FLUTICASONE PROPIONATE\SALMETEROL XINAFOATE
     Dosage: 500 50 MCG/DOSE, 1 INHALATION EVERY 12 HOURS
  6. PULMICORT RESPULES [Suspect]
     Active Substance: BUDESONIDE
     Dosage: 0.5 MG/ML, TAKE 1 VIAL BY NEBULIZER EVERY 12 HOURS
     Route: 055
  7. MOTRIN [Concomitant]
     Active Substance: IBUPROFEN
     Dosage: 600 MG EVERY 6 HOURS AS NEEDED.
     Route: 048
  8. SINGULAIR [Concomitant]
     Active Substance: MONTELUKAST SODIUM
     Route: 048
  9. TYLENOL [Concomitant]
     Active Substance: ACETAMINOPHEN
     Indication: PAIN
     Dosage: 1000 MG BY MOUTH EVERY 6 HOURS AS NEEDED FOR PAIN
     Route: 048
  10. ALBUTEROL HFA [Concomitant]
     Active Substance: ALBUTEROL SULFATE
     Indication: WHEEZING
     Dosage: 108 (90 BASE) MCG/ACT , 2 PUFFS EVERY 4 HOURS AS NEEDED
     Route: 055
  11. DUONEB [Concomitant]
     Active Substance: ALBUTEROL SULFATE\IPRATROPIUM BROMIDE
     Dosage: 0.5-2.5 (3) MG/ML 1 VIAL BY NEBULIZER EVERY 4 HOURS
  12. HYDRODIURIL [Suspect]
     Active Substance: HYDROCHLOROTHIAZIDE
     Route: 048

REACTIONS (3)
  - Arthralgia [Recovered/Resolved]
  - Pain [Recovered/Resolved]
  - Neck pain [Not Recovered/Not Resolved]

NARRATIVE: CASE EVENT DATE: 20190607
